FAERS Safety Report 6323307-X (Version None)
Quarter: 2009Q3

REPORT INFORMATION
  Report Type: 
  Country: None (occurrence: None)
  Receive Date: 20090824
  Receipt Date: 20090410
  Transmission Date: 20100115
  Serious: No
  Sender: FDA-Public Use
  Company Number: US-ABBOTT-09P-163-0567653-00

PATIENT
  Sex: Female
  Weight: 61.744 kg

DRUGS (6)
  1. NIASPAN [Suspect]
     Indication: BLOOD TRIGLYCERIDES INCREASED
     Dates: start: 20090301
  2. CRESTOR [Concomitant]
     Indication: DRUG USE FOR UNKNOWN INDICATION
  3. ANTARA (MICRONIZED) [Concomitant]
     Indication: DRUG USE FOR UNKNOWN INDICATION
  4. HYDROCHLOROTHIAZIDE [Concomitant]
     Indication: HYPERTENSION
     Dates: start: 19990101
  5. ADVAIR HFA [Concomitant]
     Indication: ASTHMA
  6. CLIMARA PRO [Concomitant]
     Indication: HOT FLUSH
     Dosage: 0.045/0.015MG

REACTIONS (3)
  - DYSPNOEA [None]
  - HOT FLUSH [None]
  - POOR QUALITY SLEEP [None]
